FAERS Safety Report 9792817 (Version 1)
Quarter: 2014Q1

REPORT INFORMATION
  Report Type: Spontaneous
  Country: US (occurrence: US)
  Receive Date: 20140102
  Receipt Date: 20140102
  Transmission Date: 20141002
  Serious: No
  Sender: FDA-Public Use
  Company Number: US-SA-2013SA122882

PATIENT
  Sex: Female

DRUGS (4)
  1. AUBAGIO [Suspect]
     Indication: MULTIPLE SCLEROSIS
     Route: 048
     Dates: start: 20130405
  2. TYLENOL EXTRA-STRENGTH [Concomitant]
  3. GUAIFENESIN/PSEUDOEPHEDRINE [Concomitant]
  4. CODEINE/PARACETAMOL [Concomitant]

REACTIONS (2)
  - Pain in extremity [Unknown]
  - Drug dose omission [Unknown]
